FAERS Safety Report 9295458 (Version 1)
Quarter: 2013Q2

REPORT INFORMATION
  Report Type: Spontaneous
  Country: US (occurrence: None)
  Receive Date: 20130516
  Receipt Date: 20130516
  Transmission Date: 20140414
  Serious: Yes (Hospitalization)
  Sender: FDA-Public Use
  Company Number: None

PATIENT
  Age: 73 Year
  Sex: Female
  Weight: 58.18 kg

DRUGS (1)
  1. CISPLATIN [Suspect]
     Dosage: ARM B - STANDARD CHEMORADIATION FOLLOWED BY 4 CYCLES OF CARBOPLATIN AND PACLITAXEL

REACTIONS (5)
  - Nausea [None]
  - Vomiting [None]
  - Diarrhoea [None]
  - Blood sodium abnormal [None]
  - Blood potassium abnormal [None]
